FAERS Safety Report 7620993-9 (Version None)
Quarter: 2011Q3

REPORT INFORMATION
  Report Type: 
  Country: None (occurrence: None)
  Receive Date: 20110719
  Receipt Date: 20110110
  Transmission Date: 20111222
  Serious: No
  Sender: FDA-Public Use
  Company Number: US-KINGPHARMUSA00001-K201100038

PATIENT
  Sex: Female
  Weight: 52.608 kg

DRUGS (1)
  1. LEVOXYL [Suspect]
     Dosage: 62.5 MCG, QD
     Route: 048
     Dates: end: 20110101

REACTIONS (6)
  - BLOOD THYROID STIMULATING HORMONE ABNORMAL [None]
  - FEELING ABNORMAL [None]
  - ANXIETY [None]
  - HYPERTHYROIDISM [None]
  - PALPITATIONS [None]
  - THYROXINE ABNORMAL [None]
